FAERS Safety Report 6840224-7 (Version None)
Quarter: 2010Q3

REPORT INFORMATION
  Report Type: 
  Country: None (occurrence: None)
  Receive Date: 20100714
  Receipt Date: 20100630
  Transmission Date: 20110219
  Serious: Yes (Other)
  Sender: FDA-Public Use
  Company Number: PHRM2007FR01109

PATIENT
  Sex: Male

DRUGS (5)
  1. TAREG [Suspect]
     Dosage: 80 MG, QD
     Route: 048
     Dates: start: 20040101, end: 20061201
  2. TAREG [Suspect]
     Dosage: 40 MG, QD
     Route: 048
     Dates: start: 20040101
  3. DISCOTRINE [Concomitant]
  4. PRAVASTATIN SODIUM [Concomitant]
     Dosage: UNK
     Dates: end: 20060101
  5. ASPEGIC 1000 [Concomitant]

REACTIONS (30)
  - ACTIVITIES OF DAILY LIVING IMPAIRED [None]
  - ACUPUNCTURE [None]
  - ARTHRALGIA [None]
  - BACK PAIN [None]
  - CONDITION AGGRAVATED [None]
  - DEAFNESS [None]
  - EYE DISORDER [None]
  - FALL [None]
  - FATIGUE [None]
  - GAIT DISTURBANCE [None]
  - HAEMATOSPERMIA [None]
  - HYPOACUSIS [None]
  - INCORRECT DOSE ADMINISTERED [None]
  - INSOMNIA [None]
  - KYPHOSIS [None]
  - LIBIDO DECREASED [None]
  - LORDOSIS [None]
  - MALAISE [None]
  - MUSCLE SPASMS [None]
  - MUSCULOSKELETAL STIFFNESS [None]
  - MYALGIA [None]
  - OSTEOARTHRITIS [None]
  - PAIN IN EXTREMITY [None]
  - POLYMYALGIA RHEUMATICA [None]
  - QRS AXIS ABNORMAL [None]
  - ROTATOR CUFF SYNDROME [None]
  - TENDON CALCIFICATION [None]
  - TENDONITIS [None]
  - TINNITUS [None]
  - VISUAL IMPAIRMENT [None]
